FAERS Safety Report 11119081 (Version 2)
Quarter: 2015Q3

REPORT INFORMATION
  Report Type: Spontaneous
  Country: JP (occurrence: JP)
  Receive Date: 20150518
  Receipt Date: 20150827
  Transmission Date: 20151125
  Serious: No
  Sender: FDA-Public Use
  Company Number: JP-PFIZER INC-2015161766

PATIENT
  Age: 78 Year
  Sex: Male
  Weight: 50 kg

DRUGS (10)
  1. FOSPHENYTOIN SODIUM. [Suspect]
     Active Substance: FOSPHENYTOIN SODIUM
     Dosage: 750 MG, UNK
     Route: 042
     Dates: start: 20150510, end: 20150510
  2. FOSPHENYTOIN SODIUM. [Suspect]
     Active Substance: FOSPHENYTOIN SODIUM
     Dosage: 750 UNK, UNK
     Route: 042
     Dates: start: 20150518, end: 20150518
  3. BFLUID [Concomitant]
     Active Substance: AMINO ACIDS\DEXTROSE\ELECTROLYTES NOS\VITAMINS
     Indication: FLUID REPLACEMENT
     Dosage: 1500 ML, DAILY
     Route: 042
     Dates: start: 20150507, end: 20150612
  4. PROSTARMON F [Concomitant]
     Active Substance: DINOPROST
     Dosage: 1000 MG, 2X/DAY
     Dates: start: 20150508, end: 20150524
  5. FOSPHENYTOIN SODIUM. [Suspect]
     Active Substance: FOSPHENYTOIN SODIUM
     Dosage: 750 UNK, UNK
     Route: 042
     Dates: start: 20150514, end: 20150514
  6. FOSPHENYTOIN SODIUM. [Suspect]
     Active Substance: FOSPHENYTOIN SODIUM
     Dosage: 750 UNK, UNK
     Route: 042
     Dates: start: 20150521, end: 20150521
  7. FOSPHENYTOIN SODIUM. [Suspect]
     Active Substance: FOSPHENYTOIN SODIUM
     Dosage: 750 MG, UNK
     Route: 042
     Dates: start: 20150528
  8. FOSPHENYTOIN SODIUM. [Suspect]
     Active Substance: FOSPHENYTOIN SODIUM
     Dosage: 750 UNK, UNK
     Route: 042
     Dates: start: 20150512, end: 20150512
  9. FOSPHENYTOIN SODIUM. [Suspect]
     Active Substance: FOSPHENYTOIN SODIUM
     Indication: EPILEPSY
     Dosage: 750 MG, DAILY
     Route: 042
     Dates: start: 20150508, end: 20150508
  10. PANTOL [Concomitant]
     Active Substance: DEXPANTHENOL
     Indication: ILEUS PARALYTIC
     Dosage: 1500 MG, DAILY
     Route: 042
     Dates: start: 20150507, end: 20150608

REACTIONS (3)
  - Peripheral swelling [Recovered/Resolved]
  - Infusion site swelling [Recovered/Resolved]
  - Infusion site extravasation [Recovered/Resolved]

NARRATIVE: CASE EVENT DATE: 20150508
